FAERS Safety Report 25067983 (Version 1)
Quarter: 2025Q1

REPORT INFORMATION
  Report Type: Spontaneous
  Country: SE (occurrence: SE)
  Receive Date: 20250312
  Receipt Date: 20250312
  Transmission Date: 20250409
  Serious: Yes (Other)
  Sender: MYLAN
  Company Number: SE-ORESUND-25OPAJY0108P

PATIENT
  Age: 44 Year
  Sex: Male

DRUGS (4)
  1. METHOTREXATE [Suspect]
     Active Substance: METHOTREXATE
     Indication: Psoriasis
  2. ADALIMUMAB [Suspect]
     Active Substance: ADALIMUMAB
     Indication: Psoriasis
  3. ETHAMBUTOL [Concomitant]
     Active Substance: ETHAMBUTOL HYDROCHLORIDE
     Indication: Mycobacterium marinum infection
     Dosage: 1200 MILLIGRAM, QD
  4. CLARITHROMYCIN [Concomitant]
     Active Substance: CLARITHROMYCIN
     Indication: Mycobacterium marinum infection
     Dosage: 500 MILLIGRAM, BID (TWICE DAILY)

REACTIONS (7)
  - Atypical mycobacterium test positive [Recovered/Resolved]
  - Mycobacterium marinum infection [Recovered/Resolved]
  - Skin mass [Recovered/Resolved]
  - Biopsy skin abnormal [Recovered/Resolved]
  - Granuloma [Recovered/Resolved]
  - Drug ineffective [Unknown]
  - Therapy change [Unknown]
